FAERS Safety Report 15928821 (Version 3)
Quarter: 2020Q4

REPORT INFORMATION
  Report Type: Spontaneous
  Country: US (occurrence: US)
  Receive Date: 20190206
  Receipt Date: 20201013
  Transmission Date: 20210113
  Serious: Yes (Other)
  Sender: FDA-Public Use
  Company Number: US-ASTRAZENECA-2018SF25986

PATIENT
  Sex: Female

DRUGS (23)
  1. PRILOSEC [Suspect]
     Active Substance: OMEPRAZOLE MAGNESIUM
     Indication: GASTROOESOPHAGEAL REFLUX DISEASE
     Route: 048
     Dates: start: 2012, end: 2016
  2. PREVACID [Suspect]
     Active Substance: LANSOPRAZOLE
     Indication: GASTROOESOPHAGEAL REFLUX DISEASE
     Route: 065
     Dates: start: 2012, end: 2016
  3. AMOXICILLIN. [Concomitant]
     Active Substance: AMOXICILLIN
     Dates: start: 20080102
  4. PEPCID [Concomitant]
     Active Substance: FAMOTIDINE
     Dates: start: 20120214
  5. ZEMPIAR [Concomitant]
     Dates: start: 20120214
  6. SPIRONOLACTONE. [Concomitant]
     Active Substance: SPIRONOLACTONE
     Dates: start: 20111206
  7. ALLOPURINOL. [Concomitant]
     Active Substance: ALLOPURINOL
     Dates: start: 20111206
  8. COLCHICINE. [Concomitant]
     Active Substance: COLCHICINE
     Dates: start: 20080225
  9. CARDURA [Concomitant]
     Active Substance: DOXAZOSIN MESYLATE
     Dates: start: 20111206
  10. XALATAN [Concomitant]
     Active Substance: LATANOPROST
     Dates: start: 20080603
  11. TIMOLOL. [Concomitant]
     Active Substance: TIMOLOL
     Dates: start: 20080416
  12. SYNTHROID [Concomitant]
     Active Substance: LEVOTHYROXINE SODIUM
     Dates: start: 20111206
  13. TORSEMIDE. [Concomitant]
     Active Substance: TORSEMIDE
     Dates: start: 20111206
  14. HYDRALAZINE [Concomitant]
     Active Substance: HYDRALAZINE HYDROCHLORIDE
     Dates: start: 20111206
  15. XANAX [Concomitant]
     Active Substance: ALPRAZOLAM
     Dates: start: 20120214
  16. PRILOSEC [Suspect]
     Active Substance: OMEPRAZOLE MAGNESIUM
     Indication: GASTROOESOPHAGEAL REFLUX DISEASE
     Dosage: GENERIC DELAYED RELEASE CAPSULE
     Route: 065
     Dates: start: 20111206
  17. PRILOSEC OTC [Suspect]
     Active Substance: OMEPRAZOLE MAGNESIUM
     Route: 048
     Dates: start: 2008, end: 2019
  18. AVANDIA [Concomitant]
     Active Substance: ROSIGLITAZONE MALEATE
     Dates: start: 20111206
  19. LIPITOR [Concomitant]
     Active Substance: ATORVASTATIN CALCIUM
     Dates: start: 20120214
  20. LANTUS [Concomitant]
     Active Substance: INSULIN GLARGINE
     Dates: start: 20111206
  21. PRILOSEC [Suspect]
     Active Substance: OMEPRAZOLE MAGNESIUM
     Indication: GASTROOESOPHAGEAL REFLUX DISEASE
     Route: 048
     Dates: start: 200707, end: 201301
  22. TOBRAMYCIN. [Concomitant]
     Active Substance: TOBRAMYCIN
     Dates: start: 20080105
  23. DILTIAZEM. [Concomitant]
     Active Substance: DILTIAZEM
     Dates: start: 20111206

REACTIONS (3)
  - Acute kidney injury [Unknown]
  - Renal injury [Unknown]
  - Chronic kidney disease [Unknown]
